FAERS Safety Report 11755397 (Version 1)
Quarter: 2015Q4

REPORT INFORMATION
  Report Type: Spontaneous
  Country: US (occurrence: US)
  Receive Date: 20151119
  Receipt Date: 20151119
  Transmission Date: 20160304
  Serious: Yes (Other)
  Sender: FDA-Public Use
  Company Number: US-MYLANLABS-2015M1039361

PATIENT

DRUGS (1)
  1. FENTANYL TRANSDERMAL SYSTEM [Suspect]
     Active Substance: FENTANYL
     Indication: BREAKTHROUGH PAIN
     Dosage: UNK
     Route: 062
     Dates: start: 20141104

REACTIONS (9)
  - Body height decreased [Unknown]
  - Contusion [Unknown]
  - Application site erythema [Unknown]
  - Osteoporosis [Unknown]
  - Syncope [Unknown]
  - Chest injury [Unknown]
  - Disorientation [Unknown]
  - Application site rash [Unknown]
  - Drug ineffective [Unknown]

NARRATIVE: CASE EVENT DATE: 20141104
